FAERS Safety Report 9186145 (Version 2)
Quarter: 2013Q2

REPORT INFORMATION
  Report Type: Spontaneous
  Country: US (occurrence: None)
  Receive Date: 20130321
  Receipt Date: 20130415
  Transmission Date: 20140414
  Serious: Yes (Hospitalization, Other)
  Sender: FDA-Public Use
  Company Number: CABO-13002438

PATIENT
  Age: 52 Year
  Sex: Male
  Weight: 67.5 kg

DRUGS (8)
  1. COMETRIQ [Suspect]
     Indication: THYROID CANCER
     Route: 048
     Dates: start: 20130206
  2. COMETRIQ [Suspect]
     Indication: METASTASES TO KIDNEY
     Route: 048
     Dates: start: 20130206
  3. LEVOTHYROXINE [Concomitant]
  4. KLOR-CON [Concomitant]
  5. MAGNESIUM OXIDE [Concomitant]
  6. WARFARIN [Concomitant]
  7. AMLODIPINE [Concomitant]
  8. CALCIUM [Concomitant]

REACTIONS (9)
  - International normalised ratio increased [None]
  - Hypertension [None]
  - Gait disturbance [None]
  - Fatigue [None]
  - Diarrhoea [None]
  - Vomiting [None]
  - Dehydration [None]
  - Labile blood pressure [None]
  - Blood pressure decreased [None]
